FAERS Safety Report 6588202-X (Version None)
Quarter: 2010Q1

REPORT INFORMATION
  Report Type: 
  Country: None (occurrence: None)
  Receive Date: 20100218
  Receipt Date: 20100211
  Transmission Date: 20100710
  Serious: Yes (Other)
  Sender: FDA-Public Use
  Company Number: US-BAYER-201013665NA

PATIENT
  Age: 46 Year
  Sex: Female

DRUGS (2)
  1. MIRENA [Suspect]
     Indication: VAGINAL HAEMORRHAGE
     Dosage: FREQUENCY: CONTINUOUS
     Route: 015
     Dates: start: 20090901
  2. SYNTHROID [Concomitant]

REACTIONS (3)
  - ALOPECIA [None]
  - OLIGOMENORRHOEA [None]
  - VAGINAL HAEMORRHAGE [None]
